FAERS Safety Report 9304985 (Version 1)
Quarter: 2013Q1

REPORT INFORMATION
  Report Type: Spontaneous
  Country: GB (occurrence: None)
  Receive Date: 20130205
  Receipt Date: 20130205
  Transmission Date: 20140127
  Serious: Yes (Hospitalization, Other)
  Sender: FDA-Public Use
  Company Number: AUR-APL-2013-00339

PATIENT
  Age: 55 Year
  Sex: Male

DRUGS (5)
  1. LAMOTRIGINE (LAMOTRIGINE) [Suspect]
     Indication: EPILEPSY
     Route: 048
  2. CLOMIPRAMINE (CLOMIPRAMINE) [Suspect]
     Indication: SCHIZOAFFECTIVE DISORDER
     Route: 048
  3. CLOZARIL (CLOZAPINE) [Suspect]
     Indication: SCHIZOPHRENIA
     Route: 048
     Dates: start: 20030918
  4. HYOSCINE HYDROBROMIDE [Suspect]
     Indication: DROOLING
     Route: 048
  5. KEPPRA (LEVETIRACETAM) [Suspect]
     Indication: EPILEPSY
     Route: 048

REACTIONS (4)
  - Urinary tract infection [None]
  - White blood cell count increased [None]
  - Neutrophil count increased [None]
  - Monocyte count increased [None]
